FAERS Safety Report 23470745 (Version 1)
Quarter: 2024Q1

REPORT INFORMATION
  Report Type: Spontaneous
  Country: PR (occurrence: US)
  Receive Date: 20240202
  Receipt Date: 20240202
  Transmission Date: 20240410
  Serious: No
  Sender: FDA-Public Use
  Company Number: PR-BAYER-2024A016730

PATIENT

DRUGS (4)
  1. ADEMPAS [Suspect]
     Active Substance: RIOCIGUAT
     Indication: Product used for unknown indication
  2. SELEXIPAG [Suspect]
     Active Substance: SELEXIPAG
     Indication: Pulmonary arterial hypertension
     Dosage: 2800 MCG
     Route: 048
     Dates: start: 2022
  3. MACITENTAN [Suspect]
     Active Substance: MACITENTAN
     Dosage: UNK
     Route: 048
     Dates: start: 2022
  4. OPSUMIT [Concomitant]
     Active Substance: MACITENTAN

REACTIONS (2)
  - Renal disorder [None]
  - Swelling [None]
